FAERS Safety Report 20367496 (Version 2)
Quarter: 2022Q4

REPORT INFORMATION
  Report Type: Report from Study
  Country: US (occurrence: US)
  Receive Date: 20220124
  Receipt Date: 20221227
  Transmission Date: 20230113
  Serious: Yes (Other)
  Sender: FDA-Public Use
  Company Number: US-SUN PHARMACEUTICAL INDUSTRIES LTD-2022R1-323831

PATIENT
  Age: 33 Year
  Sex: Female

DRUGS (1)
  1. BOSENTAN [Suspect]
     Active Substance: BOSENTAN
     Indication: Product used for unknown indication
     Dosage: 62.5 MILLIGRAM, BID
     Route: 048
     Dates: start: 2015

REACTIONS (2)
  - Liver function test increased [Unknown]
  - Malaise [Unknown]

NARRATIVE: CASE EVENT DATE: 20220107
